FAERS Safety Report 13280587 (Version 2)
Quarter: 2017Q3

REPORT INFORMATION
  Report Type: Spontaneous
  Country: US (occurrence: US)
  Receive Date: 20170301
  Receipt Date: 20170726
  Transmission Date: 20171127
  Serious: Yes (Life-Threatening, Hospitalization, Other)
  Sender: FDA-Public Use
  Company Number: US-ALVOGEN-2017-ALVOGEN-091610

PATIENT
  Age: 6 Decade
  Sex: Female

DRUGS (5)
  1. LORAZEPAM. [Concomitant]
     Active Substance: LORAZEPAM
     Indication: PRODUCT USED FOR UNKNOWN INDICATION
  2. HYDROMORPHONE [Suspect]
     Active Substance: HYDROMORPHONE
     Indication: BACK PAIN
     Route: 048
  3. CARISOPRODOL. [Concomitant]
     Active Substance: CARISOPRODOL
     Indication: PRODUCT USED FOR UNKNOWN INDICATION
  4. OXYCODONE [Suspect]
     Active Substance: OXYCODONE
     Indication: BACK PAIN
     Dosage: OXYCODONE: 15MG, 4 TIMES A DAY, OR 90MG OF MORPHINE EQUIVALENT DAILY DOSE (MEDD).
  5. BACLOFEN. [Suspect]
     Active Substance: BACLOFEN
     Indication: BACK PAIN
     Dosage: INTRATHECAL PUMP
     Route: 037

REACTIONS (4)
  - Asthenia [Unknown]
  - Drug effect decreased [Unknown]
  - Narcotic bowel syndrome [Unknown]
  - Respiratory failure [Unknown]
